FAERS Safety Report 12708016 (Version 2)
Quarter: 2016Q3

REPORT INFORMATION
  Report Type: Spontaneous
  Country: CA (occurrence: CA)
  Receive Date: 20160901
  Receipt Date: 20160902
  Transmission Date: 20161109
  Serious: Yes (Other)
  Sender: FDA-Public Use
  Company Number: CA-PFIZER INC-2016125504

PATIENT
  Age: 58 Year
  Sex: Female

DRUGS (9)
  1. KETAMINE HCL [Suspect]
     Active Substance: KETAMINE HYDROCHLORIDE
     Indication: THERAPEUTIC PROCEDURE
     Dosage: UNK
  2. PHENYTOIN. [Concomitant]
     Active Substance: PHENYTOIN
     Indication: THERAPEUTIC PROCEDURE
  3. LEVETIRACETAM. [Concomitant]
     Active Substance: LEVETIRACETAM
     Indication: THERAPEUTIC PROCEDURE
     Dosage: UNK
  4. PHENYTOIN. [Concomitant]
     Active Substance: PHENYTOIN
     Indication: SEIZURE
     Dosage: UNK
  5. PHENOBARBITAL. [Concomitant]
     Active Substance: PHENOBARBITAL
     Indication: THERAPEUTIC PROCEDURE
     Dosage: 150 MG, 2X/DAY (NG)
     Route: 049
  6. PROPOFOL. [Suspect]
     Active Substance: PROPOFOL
     Indication: THERAPEUTIC PROCEDURE
     Dosage: UNK
  7. VALPROIC ACID. [Concomitant]
     Active Substance: VALPROIC ACID
     Indication: THERAPEUTIC PROCEDURE
     Dosage: UNK
  8. MIDAZOLAM [Suspect]
     Active Substance: MIDAZOLAM\MIDAZOLAM HYDROCHLORIDE
     Indication: THERAPEUTIC PROCEDURE
     Dosage: UNK
  9. ISOFLURANE. [Suspect]
     Active Substance: ISOFLURANE
     Indication: THERAPEUTIC PROCEDURE
     Dosage: UNK

REACTIONS (1)
  - Intestinal ischaemia [Unknown]
